FAERS Safety Report 10089503 (Version 2)
Quarter: 2014Q2

REPORT INFORMATION
  Report Type: Spontaneous
  Country: GB (occurrence: GB)
  Receive Date: 20140421
  Receipt Date: 20140625
  Transmission Date: 20141212
  Serious: Yes (Other)
  Sender: FDA-Public Use
  Company Number: GB-ELI_LILLY_AND_COMPANY-GB201404003100

PATIENT
  Age: 58 Year
  Sex: Male
  Weight: 90 kg

DRUGS (6)
  1. CYMBALTA [Suspect]
     Indication: FIBROMYALGIA
     Dosage: 60 MG, QD
     Route: 048
     Dates: start: 20080621, end: 201304
  2. CYMBALTA [Suspect]
     Indication: PAIN
  3. CYMBALTA [Suspect]
     Indication: DEPRESSION
  4. MORPHINE [Suspect]
     Indication: PAIN
     Dosage: 5 MG, QD
     Route: 065
  5. DIAZEPAM [Concomitant]
  6. LANSOPRAZOLE [Concomitant]

REACTIONS (10)
  - Suicidal ideation [Recovered/Resolved]
  - Jaundice [Recovered/Resolved]
  - Abnormal behaviour [Recovered/Resolved]
  - Paraesthesia [Recovered/Resolved]
  - Tremor [Recovered/Resolved]
  - Tinnitus [Recovered/Resolved]
  - Diarrhoea [Recovered/Resolved]
  - Thinking abnormal [Recovered/Resolved]
  - Drug withdrawal syndrome [Recovered/Resolved]
  - Off label use [Recovered/Resolved]
